FAERS Safety Report 10803684 (Version 1)
Quarter: 2015Q1

REPORT INFORMATION
  Report Type: Spontaneous
  Country: GB (occurrence: GB)
  Receive Date: 20150217
  Receipt Date: 20150217
  Transmission Date: 20150721
  Serious: Yes (Other)
  Sender: FDA-Public Use
  Company Number: GB-GLAXOSMITHKLINE-GB2015019107

PATIENT
  Sex: Male

DRUGS (2)
  1. LAMICTAL [Suspect]
     Active Substance: LAMOTRIGINE
     Indication: PRODUCT USED FOR UNKNOWN INDICATION
     Dosage: 300 MG, 2X/DAY (BID)
  2. KEPPRA [Suspect]
     Active Substance: LEVETIRACETAM
     Indication: EPILEPSY
     Dosage: 2.25 G, 2X/DAY (BID)
     Route: 048

REACTIONS (7)
  - Dizziness [Unknown]
  - Aggression [Unknown]
  - Balance disorder [Unknown]
  - Seizure [Unknown]
  - Weight increased [Unknown]
  - Visual impairment [Unknown]
  - Drug ineffective [Unknown]
